FAERS Safety Report 26119826 (Version 1)
Quarter: 2025Q4

REPORT INFORMATION
  Report Type: Spontaneous
  Country: US (occurrence: US)
  Receive Date: 20251204
  Receipt Date: 20251204
  Transmission Date: 20260118
  Serious: No
  Sender: LEO PHARM
  Company Number: US-LEO Pharma-384578

PATIENT
  Age: 85 Year
  Sex: Male

DRUGS (2)
  1. ADBRY [Suspect]
     Active Substance: TRALOKINUMAB-LDRM
     Indication: Dermatitis atopic
     Dosage: 2 PENS ON DAY 1; TREATMENT IS ONGOING
     Route: 058
     Dates: start: 202511
  2. ADBRY [Suspect]
     Active Substance: TRALOKINUMAB-LDRM
     Indication: Neurodermatitis
     Dosage: 2 PENS ON DAY 1; TREATMENT IS ONGOING
     Route: 058
     Dates: start: 202511

REACTIONS (2)
  - Product use in unapproved indication [Unknown]
  - Initial insomnia [Unknown]
